FAERS Safety Report 19744822 (Version 2)
Quarter: 2021Q4

REPORT INFORMATION
  Report Type: Report from Study
  Country: US (occurrence: US)
  Receive Date: 20210825
  Receipt Date: 20211118
  Transmission Date: 20220303
  Serious: Yes (Hospitalization)
  Sender: FDA-Public Use
  Company Number: US-PFIZER INC-202101076738

PATIENT
  Age: 12 Year
  Sex: Male
  Weight: 79.7 kg

DRUGS (6)
  1. VINCRISTINE SULFATE [Suspect]
     Active Substance: VINCRISTINE SULFATE
     Indication: Acute lymphocytic leukaemia
     Dosage: 2 MG ONCE (DAYS 1, 15, AND 29)
     Route: 042
     Dates: start: 20210624
  2. METHOTREXATE SODIUM [Suspect]
     Active Substance: METHOTREXATE SODIUM
     Indication: Acute lymphocytic leukaemia
     Dosage: 9600 MG ONCE (DAYS 1, 15, 29)
     Route: 042
     Dates: start: 20210624
  3. METHOTREXATE SODIUM [Suspect]
     Active Substance: METHOTREXATE SODIUM
     Dosage: 15 MG ONCE (DAYS 1 AND 29)
     Route: 037
     Dates: start: 20210624
  4. RUXOLITINIB [Suspect]
     Active Substance: RUXOLITINIB
     Indication: Acute lymphocytic leukaemia
     Dosage: 70 MG BID (DAYS 1-14 AND 29-42), TABLET
     Route: 048
     Dates: start: 20210624
  5. MERCAPTOPURINE [Suspect]
     Active Substance: MERCAPTOPURINE
     Indication: Acute lymphocytic leukaemia
     Dosage: 50 MG MONDAY-FRIDAY (M-F) / 25 MG SATURDAY-SUNDAY (S-S) (DAYS 1-56), TABLET
     Route: 048
     Dates: start: 20210624
  6. LEUCOVORIN [Suspect]
     Active Substance: LEUCOVORIN
     Indication: Acute lymphocytic leukaemia
     Dosage: 28.8 MG Q6H (STARTING HOURS 42 POST MTX)
     Route: 042
     Dates: start: 20210626

REACTIONS (2)
  - Febrile neutropenia [Recovered/Resolved]
  - Bacteraemia [Recovered/Resolved]

NARRATIVE: CASE EVENT DATE: 20210729
